FAERS Safety Report 9107173 (Version 1)
Quarter: 2013Q1

REPORT INFORMATION
  Report Type: Spontaneous
  Country: PL (occurrence: PL)
  Receive Date: 20130221
  Receipt Date: 20130221
  Transmission Date: 20140127
  Serious: Yes (Hospitalization)
  Sender: FDA-Public Use
  Company Number: PHHY2013PL013609

PATIENT
  Age: 17 Year
  Sex: Male

DRUGS (2)
  1. CITALOPRAM [Suspect]
  2. DEXTROMETHORPHAN [Suspect]
     Dosage: 300 MG, UNK

REACTIONS (5)
  - Toxicity to various agents [Recovered/Resolved]
  - Pupillary light reflex tests abnormal [Recovered/Resolved]
  - Somnolence [Recovered/Resolved]
  - Mydriasis [Recovered/Resolved]
  - Suicide attempt [Recovered/Resolved]
